FAERS Safety Report 7576870-5 (Version None)
Quarter: 2011Q2

REPORT INFORMATION
  Report Type: 
  Country: None (occurrence: None)
  Receive Date: 20110628
  Receipt Date: 20100716
  Transmission Date: 20111010
  Serious: Yes (Hospitalization, Other)
  Sender: FDA-Public Use
  Company Number: FR-BAYER-201032988GPV

PATIENT
  Age: 56 Year
  Sex: Male

DRUGS (25)
  1. ZOLPIDEM [Concomitant]
     Dates: start: 20100701
  2. CLONAZEPAM [Concomitant]
     Indication: ANXIETY
     Dates: start: 20100323, end: 20100416
  3. MEPROZINE [Concomitant]
     Indication: INSOMNIA
     Dates: start: 20100416
  4. BUFLOMEDIL [Concomitant]
     Indication: ARTERIAL OCCLUSIVE DISEASE
     Dosage: 900 MG (DAILY DOSE), ,
     Dates: start: 20100601
  5. PROPRANOLOL [Concomitant]
     Indication: VARICES OESOPHAGEAL
     Dates: start: 20090821
  6. ZOLPIDEM [Concomitant]
     Indication: INSOMNIA
     Dates: start: 20091005, end: 20100416
  7. ACETAMINOPHEN AND CODEINE PHOSPHATE [Concomitant]
     Indication: PAIN
     Dates: end: 20100416
  8. NICOBION [Concomitant]
     Indication: HYPOVITAMINOSIS
     Dosage: 1.5 G (DAILY DOSE), ,
     Dates: start: 20100601
  9. SORAFENIB (RAF KINASE INHIBITOR) [Suspect]
     Indication: HEPATIC NEOPLASM MALIGNANT
     Dosage: 400 MG, BID
     Route: 048
     Dates: start: 20100311, end: 20100331
  10. SORAFENIB (RAF KINASE INHIBITOR) [Suspect]
     Dosage: 400 MG, BID
     Route: 048
     Dates: start: 20100512, end: 20100602
  11. TRAMADOL HCL [Concomitant]
     Indication: PREMEDICATION
     Dates: start: 20100617, end: 20100618
  12. ASPIRIN [Concomitant]
     Dates: start: 20100601
  13. TOPREC [Concomitant]
     Indication: PREMEDICATION
     Dosage: 25 MG (DAILY DOSE), ,
     Dates: start: 20100601, end: 20100621
  14. ATORVASTATIN CALCIUM [Concomitant]
     Indication: DYSLIPIDAEMIA
     Dates: start: 20100619
  15. NEXIUM [Concomitant]
     Indication: GASTROOESOPHAGEAL REFLUX DISEASE
     Dosage: 40 MG (DAILY DOSE), ,
     Dates: start: 20100701
  16. HYPERIUM [Concomitant]
     Indication: HYPERTENSION
     Dates: start: 20100501, end: 20100601
  17. PERINDOPRIL ERBUMINE [Concomitant]
     Indication: HYPERTENSION
     Dates: start: 20100417
  18. SORAFENIB (RAF KINASE INHIBITOR) [Suspect]
     Dosage: 400 MG, BID
     Route: 048
     Dates: start: 20100401, end: 20100421
  19. SORAFENIB (RAF KINASE INHIBITOR) [Suspect]
     Dosage: 400 MG, BID
     Route: 048
     Dates: start: 20100422, end: 20100511
  20. ASPIRIN [Concomitant]
     Indication: ARTERIAL OCCLUSIVE DISEASE
  21. BIPRETERAX [Concomitant]
     Indication: HYPERTENSION
     Dates: start: 20100315, end: 20100417
  22. PLACEBO [Suspect]
     Indication: HEPATIC NEOPLASM MALIGNANT
  23. ACETAMINOPHEN [Concomitant]
     Indication: PREMEDICATION
     Dosage: 4 G (DAILY DOSE), PRN,
     Dates: start: 20100617, end: 20100618
  24. BIPRETERAX [Concomitant]
     Dates: start: 20100601
  25. ACETAMINOPHEN [Concomitant]
     Indication: PREMEDICATION

REACTIONS (3)
  - AORTIC BYPASS [None]
  - PERIPHERAL ISCHAEMIA [None]
  - TOE AMPUTATION [None]
